FAERS Safety Report 10167005 (Version 1)
Quarter: 2014Q2

REPORT INFORMATION
  Report Type: Spontaneous
  Country: US (occurrence: None)
  Receive Date: 20140509
  Receipt Date: 20140509
  Transmission Date: 20141212
  Serious: Yes (Other)
  Sender: FDA-Public Use
  Company Number: None

PATIENT
  Age: 52 Year
  Sex: Male
  Weight: 69.4 kg

DRUGS (2)
  1. TRAZODONE [Suspect]
     Indication: DEPRESSION
     Route: 048
  2. TRAZODONE [Suspect]
     Indication: SLEEP DISORDER
     Route: 048

REACTIONS (6)
  - Torticollis [None]
  - Nausea [None]
  - Fatigue [None]
  - Dizziness [None]
  - Dyspepsia [None]
  - Dyspnoea [None]
